FAERS Safety Report 16837335 (Version 1)
Quarter: 2019Q3

REPORT INFORMATION
  Report Type: Spontaneous
  Country: US (occurrence: US)
  Receive Date: 20190923
  Receipt Date: 20190923
  Transmission Date: 20191005
  Serious: Yes (Other)
  Sender: FDA-Public Use
  Company Number: US-ROCHE-2392789

PATIENT
  Sex: Male
  Weight: 53.12 kg

DRUGS (1)
  1. ERIVEDGE [Suspect]
     Active Substance: VISMODEGIB
     Indication: BASAL CELL CARCINOMA
     Route: 048
     Dates: start: 201701, end: 201709

REACTIONS (3)
  - Dysphagia [Unknown]
  - Basal cell carcinoma [Not Recovered/Not Resolved]
  - Cerebrovascular accident [Unknown]
